FAERS Safety Report 15154661 (Version 1)
Quarter: 2018Q3

REPORT INFORMATION
  Report Type: Spontaneous
  Country: US (occurrence: US)
  Receive Date: 20180717
  Receipt Date: 20180717
  Transmission Date: 20181010
  Serious: No
  Sender: FDA-Public Use
  Company Number: US-VIFOR (INTERNATIONAL) INC.-VIT-2018-07067

PATIENT
  Sex: Male

DRUGS (10)
  1. TERAZOSIN HYDROCHLORIDE. [Concomitant]
     Active Substance: TERAZOSIN HYDROCHLORIDE
  2. LANTUS SOLOSTAR [Concomitant]
     Active Substance: INSULIN GLARGINE
  3. FUROSEMIDE. [Concomitant]
     Active Substance: FUROSEMIDE
  4. IRON [Concomitant]
     Active Substance: IRON
  5. FOLIC ACID. [Concomitant]
     Active Substance: FOLIC ACID
  6. LOSARTAN POTASSIUM. [Concomitant]
     Active Substance: LOSARTAN POTASSIUM
  7. SODIUM BICARBONATE. [Concomitant]
     Active Substance: SODIUM BICARBONATE
  8. CALCITRIOL. [Concomitant]
     Active Substance: CALCITRIOL
  9. AMLODIPINE BESILATE [Concomitant]
     Active Substance: AMLODIPINE BESYLATE
  10. VELTASSA [Suspect]
     Active Substance: PATIROMER
     Indication: HYPERKALAEMIA
     Route: 048
     Dates: start: 20180628

REACTIONS (2)
  - Drug dose omission [Unknown]
  - No adverse event [Unknown]
